FAERS Safety Report 6558305-4 (Version None)
Quarter: 2010Q1

REPORT INFORMATION
  Report Type: 
  Country: None (occurrence: None)
  Receive Date: 20100129
  Receipt Date: 20100127
  Transmission Date: 20100710
  Serious: Yes (Death)
  Sender: FDA-Public Use
  Company Number: CN-ABBOTT-10P-035-0622560-00

PATIENT
  Age: 80 Year
  Sex: Male

DRUGS (1)
  1. SEVOFLURANE [Suspect]
     Indication: GENERAL ANAESTHESIA
     Dates: start: 20091201, end: 20091201

REACTIONS (3)
  - CEREBRAL ISCHAEMIA [None]
  - DELIRIUM [None]
  - LOSS OF CONSCIOUSNESS [None]
